FAERS Safety Report 4342616-7 (Version None)
Quarter: 2004Q2

REPORT INFORMATION
  Report Type: 
  Country: None (occurrence: None)
  Receive Date: 20040421
  Receipt Date: 20040408
  Transmission Date: 20050107
  Serious: Yes (Hospitalization, Other)
  Sender: FDA-Public Use
  Company Number: 200412911US

PATIENT
  Sex: Female

DRUGS (27)
  1. ARAVA [Suspect]
     Indication: RHEUMATOID ARTHRITIS
     Route: 048
     Dates: start: 19990222, end: 20030221
  2. COUMADIN [Concomitant]
     Dosage: DOSE: 5 (M + F)
     Route: 048
  3. QUINIDEX [Concomitant]
     Route: 048
     Dates: end: 19991110
  4. FUROSEMIDE [Concomitant]
     Dosage: DOSE: 20 (2 TABLETS)
     Route: 048
  5. LANOXIN [Concomitant]
     Route: 048
  6. KLOR-CON [Concomitant]
     Route: 048
     Dates: start: 19990816
  7. METHOTREXATE [Concomitant]
     Dosage: DOSE: 2.5 (X3)
     Route: 048
     Dates: start: 19980807, end: 19990219
  8. PREDNISONE [Concomitant]
     Route: 048
     Dates: end: 19990501
  9. PLAQUENIL [Concomitant]
     Route: 048
     Dates: start: 19990409, end: 19990501
  10. PREVACID [Concomitant]
     Route: 048
     Dates: start: 19990816
  11. CELEBREX [Concomitant]
     Route: 048
     Dates: start: 19990816
  12. FOLIC ACID [Concomitant]
     Route: 048
  13. ACYCLOVIR [Concomitant]
     Dates: start: 19990816, end: 19990612
  14. XYLOCAINE VISCOUS [Concomitant]
     Dosage: DOSE: 5CC SWISH + SWALLOW PRN
  15. NYSTATIN [Concomitant]
     Dosage: DOSE: 1 TSP
     Route: 048
     Dates: start: 19990816, end: 20000218
  16. BACTRIM [Concomitant]
     Dosage: DOSE: UNK
     Route: 048
     Dates: end: 19990612
  17. AZULFIDINE [Concomitant]
     Route: 048
     Dates: start: 19990816, end: 19990924
  18. NIZORAL [Concomitant]
     Route: 048
     Dates: start: 19990924, end: 19991110
  19. DOXYCYCLINE [Concomitant]
     Route: 048
     Dates: start: 19990816, end: 19990924
  20. KEFLEX [Concomitant]
     Dosage: DOSE: UNK
  21. LEVAQUIN [Concomitant]
     Dosage: DOSE: UNK
  22. BETAPACE [Concomitant]
  23. CARDIZEM [Concomitant]
     Dosage: DOSE: UNK
  24. CITRACAL + D [Concomitant]
     Route: 048
     Dates: start: 19981211
  25. FOSAMAX [Concomitant]
     Route: 048
     Dates: start: 19981211, end: 19990101
  26. HISTUSSIN HC [Concomitant]
     Dosage: DOSE: UNK
  27. GUAIFENEX G [Concomitant]
     Route: 048

REACTIONS (35)
  - ABDOMINAL PAIN [None]
  - AORTIC VALVE INCOMPETENCE [None]
  - ATRIAL FIBRILLATION [None]
  - CANDIDIASIS [None]
  - CHEST PAIN [None]
  - CHILLS [None]
  - DECREASED APPETITE [None]
  - DIARRHOEA [None]
  - DILATATION ATRIAL [None]
  - DRUG INEFFECTIVE [None]
  - DYSPNOEA [None]
  - ENDOCARDITIS [None]
  - FATIGUE [None]
  - GLOSSODYNIA [None]
  - HERPES OESOPHAGITIS [None]
  - HERPES VIRUS INFECTION [None]
  - LETHARGY [None]
  - LUPUS-LIKE SYNDROME [None]
  - MARKEDLY REDUCED DIETARY INTAKE [None]
  - MITRAL VALVE INCOMPETENCE [None]
  - NAUSEA [None]
  - OESOPHAGEAL DISORDER [None]
  - ORAL PAIN [None]
  - PERICARDITIS [None]
  - PLATELET COUNT DECREASED [None]
  - PNEUMOCYSTIS CARINII INFECTION [None]
  - PNEUMONITIS [None]
  - PULMONARY GRANULOMA [None]
  - RASH [None]
  - SPLENOMEGALY [None]
  - TONGUE BLISTERING [None]
  - TRICUSPID VALVE INCOMPETENCE [None]
  - VIRAL INFECTION [None]
  - VOMITING [None]
  - WHITE BLOOD CELL COUNT DECREASED [None]
